FAERS Safety Report 12657146 (Version 2)
Quarter: 2017Q3

REPORT INFORMATION
  Report Type: Spontaneous
  Country: US (occurrence: US)
  Receive Date: 20160816
  Receipt Date: 20170821
  Transmission Date: 20171127
  Serious: No
  Sender: FDA-Public Use
  Company Number: US-ENDO PHARMACEUTICALS INC.-2016-003760

PATIENT
  Sex: Male
  Weight: 95.34 kg

DRUGS (3)
  1. SUMAVEL DOSEPRO [Suspect]
     Active Substance: SUMATRIPTAN SUCCINATE
     Indication: CLUSTER HEADACHE
     Route: 065
     Dates: start: 2010
  2. DEPAKOTE [Concomitant]
     Active Substance: DIVALPROEX SODIUM
     Indication: HEADACHE
  3. LITHIUM. [Concomitant]
     Active Substance: LITHIUM
     Indication: HEADACHE

REACTIONS (2)
  - Injection site bruising [Recovered/Resolved]
  - Device malfunction [None]
